FAERS Safety Report 7466216-5 (Version None)
Quarter: 2011Q2

REPORT INFORMATION
  Report Type: 
  Country: None (occurrence: None)
  Receive Date: 20110509
  Receipt Date: 20110426
  Transmission Date: 20111010
  Serious: Yes (Hospitalization)
  Sender: FDA-Public Use
  Company Number: IT-CELGENEUS-083-C5013-11021582

PATIENT
  Sex: Female
  Weight: 68 kg

DRUGS (7)
  1. THALIDOMIDE [Suspect]
     Dosage: 100 MILLIGRAM
     Route: 048
     Dates: start: 20110118, end: 20110205
  2. PREDNISONE [Suspect]
     Dosage: 135 MILLIGRAM
     Route: 065
     Dates: start: 20101118, end: 20110122
  3. MELPHALAN HYDROCHLORIDE [Suspect]
     Dosage: 18 MILLIGRAM
     Route: 065
     Dates: start: 20110118, end: 20110122
  4. THALIDOMIDE [Suspect]
     Indication: MULTIPLE MYELOMA
     Dosage: 200 MILLIGRAM
     Route: 048
     Dates: start: 20101116
  5. MELPHALAN HYDROCHLORIDE [Suspect]
     Indication: MULTIPLE MYELOMA
     Dosage: 18 MILLIGRAM
     Route: 065
     Dates: start: 20101116
  6. PREDNISONE [Suspect]
     Indication: MULTIPLE MYELOMA
     Dosage: 135 MILLIGRAM
     Route: 065
     Dates: start: 20101116
  7. ANTITHROMBOTIC AGENTS [Concomitant]
     Route: 065
     Dates: end: 20110205

REACTIONS (1)
  - HAEMORRHAGIC EROSIVE GASTRITIS [None]
